FAERS Safety Report 10618957 (Version 1)
Quarter: 2014Q4

REPORT INFORMATION
  Report Type: Spontaneous
  Country: IN (occurrence: None)
  Receive Date: 20141126
  Receipt Date: 20141126
  Transmission Date: 20150529
  Serious: Yes (Life-Threatening)
  Sender: FDA-Public Use
  Company Number: FK201405445

PATIENT
  Age: 1 Year
  Sex: Male

DRUGS (2)
  1. GLYCOPYRROLATE (GLUCOPYRROLATE) [Concomitant]
  2. NEOSTIGMINE [Suspect]
     Active Substance: NEOSTIGMINE
     Indication: NEUROMUSCULAR BLOCKADE REVERSAL

REACTIONS (1)
  - Pulmonary oedema [None]
